FAERS Safety Report 19393215 (Version 1)
Quarter: 2021Q2

REPORT INFORMATION
  Report Type: Report from Study
  Country: NL (occurrence: NL)
  Receive Date: 20210609
  Receipt Date: 20210609
  Transmission Date: 20210717
  Serious: Yes (Hospitalization)
  Sender: FDA-Public Use
  Company Number: NVSC2021NL126893

PATIENT
  Age: 56 Year
  Sex: Female

DRUGS (1)
  1. ZOMETA [Suspect]
     Active Substance: ZOLEDRONIC ACID
     Indication: BREAST CANCER METASTATIC
     Dosage: 1.00 X PER 12 WEEKS
     Route: 042

REACTIONS (3)
  - Off label use [Unknown]
  - Pyrexia [Unknown]
  - Anaemia [Unknown]

NARRATIVE: CASE EVENT DATE: 20210601
